FAERS Safety Report 20424382 (Version 1)
Quarter: 2022Q1

REPORT INFORMATION
  Report Type: Report from Study
  Country: US (occurrence: US)
  Receive Date: 20220203
  Receipt Date: 20220203
  Transmission Date: 20220423
  Serious: Yes (Other)
  Sender: FDA-Public Use
  Company Number: US-EXELIXIS-CABO-21043872

PATIENT
  Sex: Male

DRUGS (12)
  1. CABOMETYX [Suspect]
     Active Substance: CABOZANTINIB S-MALATE
     Indication: Renal cancer
     Dosage: 40 MG, QD
     Route: 048
     Dates: start: 202105
  2. OPDIVO [Concomitant]
     Active Substance: NIVOLUMAB
  3. CLARITIN [Concomitant]
     Active Substance: LORATADINE
  4. SENNA PLUS [Concomitant]
     Active Substance: DOCUSATE SODIUM\SENNOSIDES\SENNOSIDES A AND B
  5. ZOMETA [Concomitant]
     Active Substance: ZOLEDRONIC ACID
  6. HYDROCORTISONE [Concomitant]
     Active Substance: HYDROCORTISONE
  7. METRONIDAZOLE [Concomitant]
     Active Substance: METRONIDAZOLE
  8. CIPROFLOXACIN [Concomitant]
     Active Substance: CIPROFLOXACIN
  9. Covid-19 vaccine [Concomitant]
  10. MIRTAZAPINE [Concomitant]
     Active Substance: MIRTAZAPINE
  11. MORPHINE SULFATE [Concomitant]
     Active Substance: MORPHINE SULFATE
  12. MEGESTROL ACETATE [Concomitant]
     Active Substance: MEGESTROL ACETATE

REACTIONS (1)
  - Fistula [Unknown]
